FAERS Safety Report 5206819-1 (Version None)
Quarter: 2006Q4

REPORT INFORMATION
  Report Type: 
  Country: None (occurrence: None)
  Receive Date: 20061031
  Receipt Date: 20060619
  Transmission Date: 20070319
  Serious: Yes (Other)
  Sender: FDA-Public Use
  Company Number: US017811

PATIENT
  Age: 29 Year
  Sex: Male

DRUGS (2)
  1. PROVIGIL [Suspect]
     Indication: SOMNOLENCE
     Dosage: 100 MG, PRN; ORAL
     Route: 048
     Dates: start: 20040301, end: 20040301
  2. PROVIGIL [Suspect]
     Indication: SOMNOLENCE
     Dosage: 100 MG ONCE; ORAL
     Route: 048
     Dates: start: 20050101, end: 20050101

REACTIONS (2)
  - ERYTHEMA MULTIFORME [None]
  - WOUND INFECTION STAPHYLOCOCCAL [None]
